FAERS Safety Report 6164056-0 (Version None)
Quarter: 2009Q2

REPORT INFORMATION
  Report Type: 
  Country: None (occurrence: None)
  Receive Date: 20090420
  Receipt Date: 20090408
  Transmission Date: 20091009
  Serious: No
  Sender: FDA-Public Use
  Company Number: 2008-187273-NL

PATIENT
  Age: 40 Year
  Sex: Female

DRUGS (2)
  1. ETONOGESTREL (BATCH #: 761632/850244) [Suspect]
     Indication: CONTRACEPTION
     Dosage: DF SUBCUTANEOUS
     Route: 058
     Dates: start: 20060105, end: 20081230
  2. VENLAFAXINE HCL [Concomitant]

REACTIONS (3)
  - ABORTION SPONTANEOUS [None]
  - BLIGHTED OVUM [None]
  - PREGNANCY WITH IMPLANT CONTRACEPTIVE [None]
